FAERS Safety Report 9768660 (Version 1)
Quarter: 2013Q4

REPORT INFORMATION
  Report Type: Spontaneous
  Country: IL (occurrence: IL)
  Receive Date: 20131218
  Receipt Date: 20131218
  Transmission Date: 20140711
  Serious: Yes (Hospitalization)
  Sender: FDA-Public Use
  Company Number: IL-IPSEN BIOPHARMACEUTICALS, INC.-2013-5681

PATIENT
  Sex: Female

DRUGS (1)
  1. SOMATULINE AUTOGEL 60MG [Suspect]
     Indication: PRODUCT USED FOR UNKNOWN INDICATION
     Dosage: 60 MG
     Route: 058

REACTIONS (1)
  - Endoscopic retrograde cholangiopancreatography [Unknown]
